FAERS Safety Report 7463789-3 (Version None)
Quarter: 2011Q2

REPORT INFORMATION
  Report Type: 
  Country: None (occurrence: None)
  Receive Date: 20110506
  Receipt Date: 20110504
  Transmission Date: 20111010
  Serious: Yes (Death)
  Sender: FDA-Public Use
  Company Number: PHHY2011US37830

PATIENT
  Sex: Male

DRUGS (5)
  1. MULTI-VIT [Concomitant]
     Route: 048
  2. VITAMIN B-12 [Concomitant]
     Dosage: 100 UG, UNK
  3. LORAZEPAM [Concomitant]
     Dosage: 0.5 MG, UNK
     Route: 048
  4. GLEEVEC [Suspect]
     Dosage: 400 MG, 1 TABLET EVERY DAY
     Route: 048
  5. ZOMETA [Suspect]
     Route: 058

REACTIONS (1)
  - LUNG NEOPLASM MALIGNANT [None]
